FAERS Safety Report 10314676 (Version 2)
Quarter: 2014Q3

REPORT INFORMATION
  Report Type: Report from Study
  Country: US (occurrence: US)
  Receive Date: 20140718
  Receipt Date: 20140718
  Transmission Date: 20150326
  Serious: Yes (Hospitalization, Other)
  Sender: FDA-Public Use
  Company Number: US-TAKEDA-2014TUS005639

PATIENT
  Age: 79 Year
  Sex: Female
  Weight: 84.35 kg

DRUGS (9)
  1. SIMVASTATIN. [Concomitant]
     Active Substance: SIMVASTATIN
     Dosage: 10 MG, QD
     Route: 048
  2. PLACEBO [Suspect]
     Active Substance: UNSPECIFIED INGREDIENT
     Indication: CARDIOVASCULAR EVENT PROPHYLAXIS
     Dosage: 15 MG, QD
     Route: 048
     Dates: start: 20110728, end: 20110825
  3. PLACEBO [Suspect]
     Active Substance: UNSPECIFIED INGREDIENT
     Dosage: 30 MG, QD
     Route: 048
     Dates: start: 20110826, end: 20110922
  4. BLINDED PIOGLITAZONE [Suspect]
     Active Substance: PIOGLITAZONE
     Indication: CARDIOVASCULAR EVENT PROPHYLAXIS
     Dosage: 15 MG, QD
     Route: 048
     Dates: start: 20110728, end: 20110825
  5. BLINDED PIOGLITAZONE [Suspect]
     Active Substance: PIOGLITAZONE
     Dosage: 30 MG, QD
     Route: 048
     Dates: start: 20110826, end: 20110922
  6. PLACEBO [Suspect]
     Active Substance: UNSPECIFIED INGREDIENT
     Dosage: 45 MG, QD
     Route: 048
     Dates: start: 20110923, end: 20140512
  7. WARFARIN [Concomitant]
     Active Substance: WARFARIN
     Dosage: 5 MG, PRN
  8. BLINDED PIOGLITAZONE [Suspect]
     Active Substance: PIOGLITAZONE
     Dosage: 45 MG, QD
     Route: 048
     Dates: start: 20110923, end: 20140512
  9. ASA [Concomitant]
     Active Substance: ASPIRIN
     Dosage: 81 MG, QD
     Route: 048

REACTIONS (3)
  - Pneumonia [Recovering/Resolving]
  - Pulmonary oedema [Recovering/Resolving]
  - Cardiac failure congestive [Recovering/Resolving]

NARRATIVE: CASE EVENT DATE: 20140421
